FAERS Safety Report 6744076-5 (Version None)
Quarter: 2010Q2

REPORT INFORMATION
  Report Type: 
  Country: None (occurrence: None)
  Receive Date: 20100527
  Receipt Date: 20100525
  Transmission Date: 20101027
  Serious: Yes (Hospitalization, Other)
  Sender: FDA-Public Use
  Company Number: A0859430A

PATIENT
  Age: 59 Year
  Sex: Female
  Weight: 77.7 kg

DRUGS (17)
  1. PAZOPANIB [Suspect]
     Indication: OVARIAN CANCER RECURRENT
     Route: 048
     Dates: start: 20100405
  2. DOXIL [Suspect]
     Indication: OVARIAN CANCER RECURRENT
     Route: 042
     Dates: start: 20100412, end: 20100412
  3. AVAPRO [Concomitant]
     Indication: HYPERTENSION
     Dosage: 150MG PER DAY
     Dates: start: 20080101
  4. CYMBALTA [Concomitant]
     Indication: DEPRESSION
     Dosage: 60MG PER DAY
     Route: 048
     Dates: start: 20080101
  5. LEVOTHYROXINE SODIUM [Concomitant]
     Indication: HYPOTHYROIDISM
     Dosage: 75MCG PER DAY
     Route: 048
     Dates: start: 19890101
  6. SINGULAIR [Concomitant]
     Indication: MULTIPLE ALLERGIES
     Dosage: 10MG PER DAY
     Route: 048
     Dates: start: 20080801
  7. PHENERGAN [Concomitant]
     Indication: NAUSEA
     Dosage: 25MG AS REQUIRED
     Route: 048
     Dates: start: 20100416, end: 20100426
  8. ZOFRAN [Concomitant]
     Indication: NAUSEA
     Dosage: 4MG THREE TIMES PER DAY
     Dates: start: 20100426
  9. GABAPENTIN [Concomitant]
     Indication: NEUROPATHY PERIPHERAL
     Dosage: 600MG THREE TIMES PER DAY
     Route: 048
     Dates: start: 20100419
  10. ZOLPIDEM [Concomitant]
     Indication: INSOMNIA
     Route: 048
     Dates: start: 20100512
  11. PANTOPRAZOLE [Concomitant]
     Dosage: 40MG PER DAY
     Route: 048
     Dates: start: 20100512
  12. AMLODIPINE [Concomitant]
     Indication: HYPERTENSION
     Dosage: 5MG PER DAY
     Route: 048
     Dates: start: 20100512
  13. PROMETHAZINE [Concomitant]
     Indication: NAUSEA
     Dosage: 25MG FOUR TIMES PER DAY
     Route: 048
     Dates: start: 20100512
  14. IRBESARTAN [Concomitant]
     Indication: HYPERTENSION
     Dosage: 300MG AT NIGHT
     Route: 048
     Dates: start: 20100512
  15. DULOXETINE HYDROCHLORIDE [Concomitant]
     Indication: DEPRESSION
     Dosage: 60MG PER DAY
     Route: 048
     Dates: start: 20080101
  16. MONTELUKAST SODIUM [Concomitant]
     Indication: MULTIPLE ALLERGIES
     Dosage: 10MG PER DAY
     Route: 048
     Dates: start: 20080801
  17. ALLOPURINOL [Concomitant]
     Route: 048
     Dates: start: 20080101

REACTIONS (3)
  - DEHYDRATION [None]
  - RENAL FAILURE [None]
  - VOMITING [None]
